FAERS Safety Report 9473115 (Version 1)
Quarter: 2013Q3

REPORT INFORMATION
  Report Type: Spontaneous
  Country: US (occurrence: US)
  Receive Date: 20130823
  Receipt Date: 20130823
  Transmission Date: 20140515
  Serious: No
  Sender: FDA-Public Use
  Company Number: US-BRISTOL-MYERS SQUIBB COMPANY-17454554

PATIENT
  Age: 54 Year
  Sex: Male
  Weight: 83.9 kg

DRUGS (6)
  1. SPRYCEL [Suspect]
     Indication: CHRONIC MYELOID LEUKAEMIA
  2. LYRICA [Concomitant]
  3. CELEBREX [Concomitant]
  4. AMBIEN [Concomitant]
  5. CYMBALTA [Concomitant]
  6. HYDROCODONE [Concomitant]

REACTIONS (3)
  - Headache [Recovering/Resolving]
  - Nausea [Unknown]
  - Dizziness [Unknown]
